FAERS Safety Report 9250871 (Version 1)
Quarter: 2013Q1

REPORT INFORMATION
  Report Type: Spontaneous
  Country: US (occurrence: None)
  Receive Date: 20130305
  Receipt Date: 20130305
  Transmission Date: 20140127
  Serious: Yes (Other)
  Sender: FDA-Public Use
  Company Number: 163-21880-12071242

PATIENT
  Age: 74 Year
  Sex: Male

DRUGS (4)
  1. REVLIMID [Suspect]
     Indication: MYELODYSPLASTIC SYNDROME
     Dosage: 1 IN 1 D
     Route: 048
     Dates: start: 20120627, end: 20120629
  2. BABY ASPIRIN (ACETYLSALICYLIC ACID) [Concomitant]
  3. LOVASTATIN (LOVASTATIN) [Concomitant]
  4. PREDNISONE (PREDNISONE) [Concomitant]

REACTIONS (3)
  - Anaemia [None]
  - Rash [None]
  - Local swelling [None]
